FAERS Safety Report 11066148 (Version 1)
Quarter: 2015Q2

REPORT INFORMATION
  Report Type: Spontaneous
  Country: TR (occurrence: None)
  Receive Date: 20150423
  Receipt Date: 20150423
  Transmission Date: 20150821
  Serious: Yes (Other)
  Sender: FDA-Public Use
  Company Number: 2015JUB00103

PATIENT
  Age: 24 Year
  Sex: Female

DRUGS (2)
  1. METHYLPREDNISOLONE (METHYLPREDNISOLONE) UNKNOWN [Suspect]
     Active Substance: METHYLPREDNISOLONE
     Indication: DENTAL OPERATION
  2. CETIRIZINE (CETIRIZINE) [Suspect]
     Active Substance: CETIRIZINE HYDROCHLORIDE

REACTIONS (5)
  - Loss of consciousness [None]
  - Dyspnoea [None]
  - Dysphonia [None]
  - Hypersensitivity [None]
  - Angioedema [None]
